FAERS Safety Report 5276563-3 (Version None)
Quarter: 2007Q1

REPORT INFORMATION
  Report Type: 
  Country: None (occurrence: None)
  Receive Date: 20070327
  Receipt Date: 20070323
  Transmission Date: 20070707
  Serious: Yes (Death, Other)
  Sender: FDA-Public Use
  Company Number: PHEH2005US12185

PATIENT
  Age: 69 Year
  Sex: Female

DRUGS (5)
  1. ZOMETA [Suspect]
     Indication: METASTASES TO BONE
     Dosage: UNK, UNK
     Dates: start: 20040401, end: 20051101
  2. AREDIA [Suspect]
     Indication: BREAST CANCER METASTATIC
     Dates: start: 19990901, end: 20020901
  3. NAVELBINE [Concomitant]
     Dates: start: 20040801, end: 20060901
  4. GEMZAR [Concomitant]
     Dates: start: 20040401, end: 20040701
  5. PROCRIT [Concomitant]
     Dates: start: 20040401, end: 20061201

REACTIONS (10)
  - BONE DISORDER [None]
  - IMPAIRED HEALING [None]
  - METASTATIC NEOPLASM [None]
  - ORAL SOFT TISSUE DISORDER [None]
  - OSTEITIS [None]
  - OSTEOMYELITIS [None]
  - OSTEONECROSIS [None]
  - SOFT TISSUE INFECTION [None]
  - TOOTH EXTRACTION [None]
  - WOUND TREATMENT [None]
